FAERS Safety Report 14344024 (Version 2)
Quarter: 2018Q1

REPORT INFORMATION
  Report Type: Spontaneous
  Country: PL (occurrence: PL)
  Receive Date: 20180102
  Receipt Date: 20180223
  Transmission Date: 20180509
  Serious: Yes (Other)
  Sender: FDA-Public Use
  Company Number: PL-SA-2017SA260194

PATIENT
  Sex: Female

DRUGS (16)
  1. DIAZEPAM. [Suspect]
     Active Substance: DIAZEPAM
     Route: 064
  2. NITRENDIPINE [Suspect]
     Active Substance: NITRENDIPINE
     Route: 064
  3. MAGNESIUM SULFATE. [Suspect]
     Active Substance: MAGNESIUM SULFATE
     Route: 064
  4. FLUCONAZOLE. [Suspect]
     Active Substance: FLUCONAZOLE
     Route: 064
  5. METHYLDOPA. [Suspect]
     Active Substance: METHYLDOPA
     Route: 064
  6. PIPERACILLIN [Suspect]
     Active Substance: PIPERACILLIN
     Route: 064
  7. TAZOBACTAM [Suspect]
     Active Substance: TAZOBACTAM
     Route: 064
  8. CEFUROXIME. [Suspect]
     Active Substance: CEFUROXIME
     Route: 064
  9. OXYGEN. [Suspect]
     Active Substance: OXYGEN
     Route: 064
  10. BETAMETHASONE DIPROPIONATE/BETAMETHASONE SODIUM PHOSPHATE [Suspect]
     Active Substance: BETAMETHASONE DIPROPIONATE\BETAMETHASONE SODIUM PHOSPHATE
     Indication: IMMATURE RESPIRATORY SYSTEM
     Route: 064
  11. OSELTAMIVIR [Suspect]
     Active Substance: OSELTAMIVIR
     Route: 064
  12. ENOXAPARIN SODIUM. [Suspect]
     Active Substance: ENOXAPARIN SODIUM
     Route: 064
  13. METOPROLOL. [Suspect]
     Active Substance: METOPROLOL
     Route: 064
  14. CIPROFLOXACIN. [Suspect]
     Active Substance: CIPROFLOXACIN
     Route: 064
  15. HEPARIN [Suspect]
     Active Substance: HEPARIN SODIUM
     Route: 064
  16. BUDESONIDE. [Suspect]
     Active Substance: BUDESONIDE
     Dosage: POWDER
     Route: 064

REACTIONS (2)
  - Foetal exposure during pregnancy [Unknown]
  - Premature baby [Unknown]
